FAERS Safety Report 4689309-4 (Version None)
Quarter: 2005Q2

REPORT INFORMATION
  Report Type: 
  Country: None (occurrence: None)
  Receive Date: 20050608
  Receipt Date: 20050324
  Transmission Date: 20051028
  Serious: No
  Sender: FDA-Public Use
  Company Number: 2005-BP-05115BP

PATIENT
  Age: 79 Year
  Sex: Female

DRUGS (14)
  1. SPIRIVA [Suspect]
     Indication: CHRONIC OBSTRUCTIVE PULMONARY DISEASE
     Dosage: 18 MCG (18 MCG, QD), IH
     Route: 055
     Dates: start: 20050322
  2. LISINOPRIL [Concomitant]
  3. LASIX [Concomitant]
  4. WARFARIN [Concomitant]
  5. DIGOXIN [Concomitant]
  6. FOSAMAX [Concomitant]
  7. FOLATE (FOLATE SODIUM) [Concomitant]
  8. POSTASSIUM (K+)(POTASSIUM) [Concomitant]
  9. VITAMIN D [Concomitant]
  10. CALCIUM GLUCONATE [Concomitant]
  11. TYLENOL WITH CODEINE (PANADEINE CO) [Concomitant]
  12. CAPTOPRIL [Concomitant]
  13. DILTIAZEM [Concomitant]
  14. ALBUTEROL [Concomitant]

REACTIONS (2)
  - DYSPNOEA EXACERBATED [None]
  - TREMOR [None]
